FAERS Safety Report 10040791 (Version 2)
Quarter: 2014Q2

REPORT INFORMATION
  Report Type: Spontaneous
  Country: JP (occurrence: JP)
  Receive Date: 20140327
  Receipt Date: 20140409
  Transmission Date: 20141212
  Serious: Yes (Other)
  Sender: FDA-Public Use
  Company Number: PHHY2014JP034006

PATIENT
  Sex: 0

DRUGS (4)
  1. HYDRALAZINE [Suspect]
     Route: 064
  2. OXYTOCIN [Suspect]
     Route: 064
  3. DIAZEPAM [Suspect]
     Route: 064
  4. PROSTAGLANDIN E2 [Suspect]
     Route: 064

REACTIONS (2)
  - Foetal heart rate decreased [Unknown]
  - Foetal exposure during pregnancy [Unknown]
